FAERS Safety Report 12368561 (Version 1)
Quarter: 2016Q2

REPORT INFORMATION
  Report Type: Spontaneous
  Country: US (occurrence: US)
  Receive Date: 20160513
  Receipt Date: 20160513
  Transmission Date: 20160815
  Serious: No
  Sender: FDA-Public Use
  Company Number: US-JNJFOC-20160418457

PATIENT
  Age: 57 Year
  Sex: Female
  Weight: 40.82 kg

DRUGS (2)
  1. MENS ROGAINE [Suspect]
     Active Substance: MINOXIDIL
     Route: 061
  2. MENS ROGAINE [Suspect]
     Active Substance: MINOXIDIL
     Indication: ALOPECIA
     Dosage: TWICE A DAY
     Route: 061

REACTIONS (3)
  - Intentional product misuse [Unknown]
  - Drug administered at inappropriate site [Unknown]
  - Product use issue [Unknown]
